FAERS Safety Report 20921944 (Version 1)
Quarter: 2022Q2

REPORT INFORMATION
  Report Type: Report from Study
  Country: US (occurrence: None)
  Receive Date: 20220607
  Receipt Date: 20220607
  Transmission Date: 20220721
  Serious: Yes (Hospitalization, Other)
  Sender: FDA-Public Use
  Company Number: US-ROCHE-3025918

PATIENT
  Age: 75 Year
  Sex: Female
  Weight: 48.5 kg

DRUGS (1)
  1. ATEZOLIZUMAB [Suspect]
     Active Substance: ATEZOLIZUMAB
     Indication: Ovarian epithelial cancer
     Dosage: DATE OF FIRST DOSE-25/JUL/2019, DATE OF LAST DOSE-25/JUL/2019
     Route: 042

REACTIONS (7)
  - Hyperthyroidism [Recovered/Resolved]
  - Hyponatraemia [Not Recovered/Not Resolved]
  - Neutrophil count decreased [Unknown]
  - Hypokalaemia [Unknown]
  - Pneumonitis [Unknown]
  - Infection [Unknown]
  - Embolism [Unknown]

NARRATIVE: CASE EVENT DATE: 20190808
